FAERS Safety Report 11183088 (Version 1)
Quarter: 2015Q2

REPORT INFORMATION
  Report Type: Spontaneous
  Country: US (occurrence: US)
  Receive Date: 20150611
  Receipt Date: 20150611
  Transmission Date: 20150821
  Serious: Yes (Hospitalization)
  Sender: FDA-Public Use
  Company Number: US-B.I. PHARMACEUTICALS,INC./RIDGEFIELD-2015-BI-30623BP

PATIENT
  Sex: Female

DRUGS (1)
  1. PRADAXA [Suspect]
     Active Substance: DABIGATRAN ETEXILATE MESYLATE
     Indication: PRODUCT USED FOR UNKNOWN INDICATION
     Dosage: 300 MG
     Route: 065
     Dates: start: 201010

REACTIONS (7)
  - Wrist fracture [Unknown]
  - Fall [Unknown]
  - Cerebrovascular accident [Unknown]
  - Visual field defect [Unknown]
  - Joint dislocation [Unknown]
  - Depression [Unknown]
  - Fall [Unknown]

NARRATIVE: CASE EVENT DATE: 201410
